FAERS Safety Report 8510337-2 (Version None)
Quarter: 2012Q3

REPORT INFORMATION
  Report Type: 
  Country: None (occurrence: None)
  Receive Date: 20120713
  Receipt Date: 20120709
  Transmission Date: 20120928
  Serious: Yes (Hospitalization)
  Sender: FDA-Public Use
  Company Number: DK-ABBOTT-12P-044-0954360-00

PATIENT
  Sex: Male

DRUGS (2)
  1. METHOTREXATE [Concomitant]
     Indication: PRODUCT USED FOR UNKNOWN INDICATION
     Dates: start: 20000101
  2. HUMIRA [Suspect]
     Indication: RHEUMATOID ARTHRITIS
     Dosage: DOSE ON 12 JUN 2012 WAS TAKEN AFTER A 17 DAY PAUSE DUE TO INFECTION.
     Route: 058
     Dates: start: 20110308, end: 20120612

REACTIONS (8)
  - EYELID PTOSIS [None]
  - PARAESTHESIA [None]
  - AREFLEXIA [None]
  - ATAXIA [None]
  - ACUTE POLYNEUROPATHY [None]
  - DIPLOPIA [None]
  - MILLER FISHER SYNDROME [None]
  - BALANCE DISORDER [None]
